FAERS Safety Report 5331436-2 (Version None)
Quarter: 2007Q2

REPORT INFORMATION
  Report Type: 
  Country: None (occurrence: None)
  Receive Date: 20070522
  Receipt Date: 20070511
  Transmission Date: 20071010
  Serious: Yes (Hospitalization, Other)
  Sender: FDA-Public Use
  Company Number: US-PFIZER INC-2007039078

PATIENT
  Sex: Male
  Weight: 99.545 kg

DRUGS (16)
  1. LYRICA [Suspect]
     Indication: NEURALGIA
  2. POTASSIUM ACETATE [Concomitant]
  3. CHLORTHALIDONE [Concomitant]
  4. CAPTOPRIL [Concomitant]
  5. HYDRALAZINE HCL [Concomitant]
  6. COUMADIN [Concomitant]
  7. SPIRONOLACTONE [Concomitant]
  8. DIAZEPAM [Concomitant]
  9. HYDROCODONE BITARTRATE [Concomitant]
  10. PLAVIX [Concomitant]
  11. CLONAZEPAM [Concomitant]
  12. ZYRTEC-D 12 HOUR [Concomitant]
  13. LANTUS [Concomitant]
  14. QUINAPRIL AND HYDROCHLOROTHIAZIDE [Concomitant]
  15. ESOMEPRAZOLE MAGNESIUM [Concomitant]
  16. INSULIN ASPART [Concomitant]

REACTIONS (10)
  - ABDOMINAL PAIN UPPER [None]
  - ANGINA PECTORIS [None]
  - BURNS FIRST DEGREE [None]
  - BURNS THIRD DEGREE [None]
  - CEREBROVASCULAR ACCIDENT [None]
  - EYE DISORDER [None]
  - GASTRITIS [None]
  - LOSS OF CONSCIOUSNESS [None]
  - RETINAL ARTERY OCCLUSION [None]
  - THERMAL BURN [None]
